FAERS Safety Report 25769133 (Version 2)
Quarter: 2025Q3

REPORT INFORMATION
  Report Type: Spontaneous
  Country: JP (occurrence: JP)
  Receive Date: 20250905
  Receipt Date: 20250926
  Transmission Date: 20251021
  Serious: Yes (Hospitalization)
  Sender: AMGEN
  Company Number: JP-AMGEN-JPNSP2025173580

PATIENT
  Age: 84 Year
  Sex: Female
  Weight: 57 kg

DRUGS (6)
  1. EVENITY [Suspect]
     Active Substance: ROMOSOZUMAB-AQQG
     Indication: Osteoporosis
     Dosage: 105 MILLIGRAM, QMO
     Route: 058
     Dates: start: 20241129
  2. DULOXETINE [Concomitant]
     Active Substance: DULOXETINE
     Dosage: 20 MILLIGRAM, QD
  3. ELDECALCITOL [Concomitant]
     Active Substance: ELDECALCITOL
     Dosage: 0.5 MILLIGRAM, QD
  4. MAGNESIUM OXIDE [Concomitant]
     Active Substance: MAGNESIUM OXIDE
     Dosage: 500 MILLIGRAM, TID
  5. BENIDIPINE [Concomitant]
     Active Substance: BENIDIPINE
     Dosage: 4 MILLIGRAM, BID
  6. PITAVASTATIN [Concomitant]
     Active Substance: PITAVASTATIN
     Dosage: 2 MILLIGRAM, QD

REACTIONS (3)
  - Femur fracture [Recovered/Resolved with Sequelae]
  - Fall [Recovered/Resolved]
  - Off label use [Unknown]

NARRATIVE: CASE EVENT DATE: 20241129
